FAERS Safety Report 9305856 (Version 1)
Quarter: 2013Q2

REPORT INFORMATION
  Report Type: Spontaneous
  Country: US (occurrence: None)
  Receive Date: 20130522
  Receipt Date: 20130522
  Transmission Date: 20140414
  Serious: No
  Sender: FDA-Public Use
  Company Number: None

PATIENT
  Age: 63 Year
  Sex: Female
  Weight: 86.18 kg

DRUGS (1)
  1. VICTOZA [Suspect]
     Indication: DIABETES MELLITUS
     Route: 058
     Dates: start: 20130326, end: 20130519

REACTIONS (4)
  - Drug effect decreased [None]
  - Abdominal pain [None]
  - Stress [None]
  - Pancreatitis [None]
